FAERS Safety Report 5382607-0 (Version None)
Quarter: 2007Q3

REPORT INFORMATION
  Report Type: 
  Country: None (occurrence: None)
  Receive Date: 20070710
  Receipt Date: 20070703
  Transmission Date: 20080115
  Serious: Yes (Other)
  Sender: FDA-Public Use
  Company Number: PHBS2007JP11327

PATIENT
  Age: 59 Year
  Sex: Female

DRUGS (7)
  1. ZOMETA [Suspect]
     Indication: BONE LESION
     Dosage: 4 MG, UNK
     Route: 041
     Dates: start: 20060810, end: 20070701
  2. TAMOFEN [Concomitant]
     Dosage: 20 MG/DAY
     Route: 048
     Dates: start: 20070125
  3. OMEPRAL [Concomitant]
     Dosage: 20 MG/DAY
     Route: 048
     Dates: start: 20060527
  4. GEMZAR [Concomitant]
     Dosage: 1 G/DAY
     Route: 041
     Dates: start: 20070426
  5. GASMOTIN [Concomitant]
     Dosage: 15 MG/DAY
     Route: 048
     Dates: start: 20060527
  6. PAXIL [Concomitant]
     Dosage: 20 MG/DAY
     Route: 048
     Dates: start: 20061102
  7. INDISETRON [Concomitant]
     Dosage: 8 MG/DAY
     Route: 048
     Dates: start: 20070426

REACTIONS (8)
  - ALANINE AMINOTRANSFERASE INCREASED [None]
  - BLOOD ALKALINE PHOSPHATASE INCREASED [None]
  - BREAST CANCER [None]
  - GINGIVAL SWELLING [None]
  - METASTASES TO BONE [None]
  - OSTEONECROSIS [None]
  - PERIODONTITIS [None]
  - TOOTHACHE [None]
